FAERS Safety Report 11092930 (Version 2)
Quarter: 2015Q2

REPORT INFORMATION
  Report Type: Spontaneous
  Country: US (occurrence: None)
  Receive Date: 20150505
  Receipt Date: 20150609
  Transmission Date: 20150821
  Serious: Yes (Hospitalization)
  Sender: FDA-Public Use
  Company Number: US-2015CRT000469

PATIENT
  Age: 60 Year
  Sex: Female
  Weight: 92.5 kg

DRUGS (1)
  1. KORLYM [Suspect]
     Active Substance: MIFEPRISTONE
     Indication: CUSHING^S SYNDROME
     Route: 048
     Dates: start: 201306, end: 20140220

REACTIONS (5)
  - Pneumonia [None]
  - Inappropriate schedule of drug administration [None]
  - Urinary tract infection [None]
  - Hip fracture [None]
  - Fall [None]

NARRATIVE: CASE EVENT DATE: 20140220
